FAERS Safety Report 9159701 (Version 1)
Quarter: 2013Q1

REPORT INFORMATION
  Report Type: Spontaneous
  Country: FR (occurrence: FR)
  Receive Date: 20130313
  Receipt Date: 20130313
  Transmission Date: 20140127
  Serious: Yes (Other)
  Sender: FDA-Public Use
  Company Number: FR-JNJFOC-20130302625

PATIENT
  Sex: Male

DRUGS (4)
  1. XARELTO [Suspect]
     Indication: PRODUCT USED FOR UNKNOWN INDICATION
     Route: 048
     Dates: start: 201211
  2. ELISOR [Concomitant]
     Route: 065
  3. TEMESTA [Concomitant]
     Route: 065
  4. JOSIR [Concomitant]
     Route: 065

REACTIONS (1)
  - Anaemia [Unknown]
